FAERS Safety Report 7964472-8 (Version None)
Quarter: 2011Q4

REPORT INFORMATION
  Report Type: 
  Country: None (occurrence: None)
  Receive Date: 20111208
  Receipt Date: 20111128
  Transmission Date: 20120403
  Serious: Yes (Hospitalization)
  Sender: FDA-Public Use
  Company Number: US-BAYER-2011-040399

PATIENT
  Age: 30 Year
  Sex: Female
  Weight: 63.039 kg

DRUGS (15)
  1. TRICOR [Concomitant]
     Indication: BLOOD TRIGLYCERIDES INCREASED
     Dosage: UNK
     Dates: start: 20050101
  2. YAZ [Suspect]
     Dosage: UNK
     Dates: start: 20080501, end: 20090301
  3. DROSPIRENONE AND ETHINYL ESTRADIOL [Suspect]
     Indication: PREMENSTRUAL SYNDROME
     Dosage: UNK
     Dates: start: 20040101, end: 20090301
  4. XANAX [Concomitant]
  5. YASMIN [Suspect]
  6. CYMBALTA [Concomitant]
  7. LISINOPRIL [Concomitant]
  8. INSULIN [Concomitant]
     Indication: DIABETES MELLITUS
     Dosage: UNK
     Dates: start: 20050101
  9. NEURONTIN [Concomitant]
  10. HUMALOG [Concomitant]
  11. GABAPENTIN [Concomitant]
  12. DROSPIRENONE AND ETHINYL ESTRADIOL [Suspect]
     Dosage: UNK
     Dates: start: 20080501, end: 20090301
  13. NEURONTIN [Concomitant]
  14. YAZ [Suspect]
     Indication: PREMENSTRUAL SYNDROME
     Dosage: UNK
     Dates: start: 20040101, end: 20090301
  15. YASMIN [Suspect]
     Indication: PREMENSTRUAL SYNDROME
     Dosage: UNK
     Dates: start: 20060101, end: 20070101

REACTIONS (3)
  - DEEP VEIN THROMBOSIS [None]
  - PAIN [None]
  - PULMONARY EMBOLISM [None]
